FAERS Safety Report 19509623 (Version 1)
Quarter: 2021Q3

REPORT INFORMATION
  Report Type: Spontaneous
  Country: US (occurrence: US)
  Receive Date: 20210708
  Receipt Date: 20210708
  Transmission Date: 20211014
  Serious: Yes (Other)
  Sender: FDA-Public Use
  Company Number: US-PURDUE PHARMA-USA-2021-0273881

PATIENT
  Age: 86 Year
  Sex: Female

DRUGS (1)
  1. SENOKOT?S [Suspect]
     Active Substance: DOCUSATE SODIUM\SENNOSIDES
     Indication: CONSTIPATION
     Route: 048

REACTIONS (5)
  - Vomiting [Unknown]
  - Choking [Unknown]
  - Neoplasm malignant [Unknown]
  - Throat irritation [Unknown]
  - Retching [Unknown]
